FAERS Safety Report 6671413-2 (Version None)
Quarter: 2010Q2

REPORT INFORMATION
  Report Type: 
  Country: None (occurrence: None)
  Receive Date: 20100406
  Receipt Date: 20100406
  Transmission Date: 20101027
  Serious: Yes (Other)
  Sender: FDA-Public Use
  Company Number: None

PATIENT
  Age: 8 Year
  Sex: Male
  Weight: 68.0396 kg

DRUGS (2)
  1. GUANFACINE [Suspect]
     Dosage: 1MG 1 DAILY AT DINNER PO ; 1/2 MG 1 DAILY AT BREAKFA PO
     Route: 048
     Dates: start: 20090201, end: 20100402
  2. GUANFACINE HYDROCHLORIDE [Concomitant]

REACTIONS (2)
  - HEADACHE [None]
  - MIGRAINE WITH AURA [None]
